FAERS Safety Report 7009435-4 (Version None)
Quarter: 2010Q3

REPORT INFORMATION
  Report Type: 
  Country: None (occurrence: None)
  Receive Date: 20100921
  Receipt Date: 20100907
  Transmission Date: 20110219
  Serious: Yes (Other)
  Sender: FDA-Public Use
  Company Number: ACO_02121_2010

PATIENT
  Sex: Female

DRUGS (1)
  1. AMPYRA [Suspect]
     Indication: GAIT DISTURBANCE
     Dosage: 10 MG  (10 MG BID ORAL)
     Route: 048
     Dates: start: 20100601

REACTIONS (5)
  - ERYTHEMA [None]
  - MUSCULAR WEAKNESS [None]
  - MUSCULOSKELETAL DISORDER [None]
  - POLLAKIURIA [None]
  - PRURITUS [None]
